FAERS Safety Report 13121758 (Version 1)
Quarter: 2017Q1

REPORT INFORMATION
  Report Type: Spontaneous
  Country: US (occurrence: US)
  Receive Date: 20170115
  Receipt Date: 20170115
  Transmission Date: 20170428
  Serious: Yes (Other)
  Sender: FDA-Public Use
  Company Number: None

PATIENT
  Age: 52 Year
  Sex: Female
  Weight: 81 kg

DRUGS (1)
  1. DULOXETINE. [Suspect]
     Active Substance: DULOXETINE
     Indication: DEPRESSION
     Route: 048
     Dates: start: 20161226, end: 20170115

REACTIONS (4)
  - Product substitution issue [None]
  - Activities of daily living impaired [None]
  - Depression [None]
  - Tremor [None]

NARRATIVE: CASE EVENT DATE: 20170101
